FAERS Safety Report 10566823 (Version 1)
Quarter: 2014Q4

REPORT INFORMATION
  Report Type: Spontaneous
  Country: DE (occurrence: DE)
  Receive Date: 20141105
  Receipt Date: 20141105
  Transmission Date: 20150529
  Serious: Yes (Congenital Anomaly, Other)
  Sender: FDA-Public Use
  Company Number: DE-TEVA-518405GER

PATIENT
  Age: 1 Day
  Sex: Male
  Weight: 3.5 kg

DRUGS (3)
  1. OLANZAPINE. [Suspect]
     Active Substance: OLANZAPINE
     Indication: SCHIZOPHRENIA, PARANOID TYPE
     Dosage: 7.5 MILLIGRAM DAILY;
     Route: 064
     Dates: start: 20130128, end: 20131026
  2. CENTRUM MATERNA [Concomitant]
     Indication: PROPHYLAXIS OF NEURAL TUBE DEFECT
     Dosage: .4 MILLIGRAM DAILY;
     Route: 064
  3. ANAFRANIL [Suspect]
     Active Substance: CLOMIPRAMINE HYDROCHLORIDE
     Indication: SCHIZOPHRENIA, PARANOID TYPE
     Dosage: 75 MILLIGRAM DAILY;
     Route: 064
     Dates: start: 20130128, end: 20131026

REACTIONS (5)
  - Foot deformity [Unknown]
  - Foetal exposure during pregnancy [Unknown]
  - Drug withdrawal syndrome neonatal [Recovered/Resolved]
  - Atrial septal defect [Unknown]
  - Hyperbilirubinaemia neonatal [Recovered/Resolved]

NARRATIVE: CASE EVENT DATE: 20131026
